FAERS Safety Report 6662204-7 (Version None)
Quarter: 2010Q1

REPORT INFORMATION
  Report Type: 
  Country: None (occurrence: None)
  Receive Date: 20100331
  Receipt Date: 20100322
  Transmission Date: 20100710
  Serious: Yes (Other)
  Sender: FDA-Public Use
  Company Number: US-PFIZER INC-2009171869

PATIENT
  Sex: Female

DRUGS (7)
  1. CADUET [Suspect]
     Indication: BLOOD CHOLESTEROL INCREASED
     Dosage: 5MG/5MG DAILY
     Dates: start: 20090201
  2. LIPITOR [Suspect]
     Indication: BLOOD CHOLESTEROL ABNORMAL
     Dosage: 5 MG, DAILY
     Route: 048
  3. NORVASC [Concomitant]
     Dosage: 5 MG, UNK
  4. AVAPRO [Concomitant]
     Dosage: 5 MG, UNK
  5. OS-CAL [Concomitant]
     Dosage: UNK
  6. CENTRUM [Concomitant]
     Dosage: UNK
  7. VITAMIN B COMPLEX TAB [Concomitant]
     Dosage: UNK

REACTIONS (4)
  - DIZZINESS [None]
  - MENISCUS LESION [None]
  - PRURITUS [None]
  - WRONG TECHNIQUE IN DRUG USAGE PROCESS [None]
